FAERS Safety Report 5306958-0 (Version None)
Quarter: 2007Q2

REPORT INFORMATION
  Report Type: 
  Country: None (occurrence: None)
  Receive Date: 20070419
  Receipt Date: 20070405
  Transmission Date: 20071010
  Serious: Yes (Other)
  Sender: FDA-Public Use
  Company Number: SPV1-2007-01923

PATIENT
  Sex: Male

DRUGS (2)
  1. DAYTRANA [Suspect]
  2. GEODON [Concomitant]

REACTIONS (1)
  - PRIAPISM [None]
